FAERS Safety Report 24105150 (Version 1)
Quarter: 2024Q3

REPORT INFORMATION
  Report Type: Spontaneous
  Country: US (occurrence: None)
  Receive Date: 20240716
  Receipt Date: 20240716
  Transmission Date: 20241016
  Serious: Yes (Hospitalization, Disabling)
  Sender: Public
  Company Number: None

PATIENT
  Age: 63 Year
  Sex: Female
  Weight: 68.85 kg

DRUGS (10)
  1. DUPIXENT [Suspect]
     Active Substance: DUPILUMAB
     Indication: Neurodermatitis
     Dosage: 1 INJECTION EVERY 2 WEEKS SUBCUTANEOUS
     Route: 058
     Dates: start: 20240607, end: 20240621
  2. EFFEXOR [Concomitant]
     Active Substance: VENLAFAXINE HYDROCHLORIDE
  3. doxycycline hycate [Concomitant]
  4. AMLODIPINE [Concomitant]
     Active Substance: AMLODIPINE BESYLATE
  5. ZYRTEC [Concomitant]
     Active Substance: CETIRIZINE HYDROCHLORIDE
  6. DIAZEPAM [Concomitant]
     Active Substance: DIAZEPAM
  7. Lysine vitamin [Concomitant]
  8. POTASSIUM [Concomitant]
     Active Substance: POTASSIUM
  9. FISH OIL\OMEGA-3 FATTY ACIDS [Concomitant]
     Active Substance: FISH OIL\OMEGA-3 FATTY ACIDS
  10. VITAMIN E [Concomitant]
     Active Substance: .ALPHA.-TOCOPHEROL

REACTIONS (18)
  - Injection site pain [None]
  - Haemorrhage [None]
  - Skin injury [None]
  - Yellow skin [None]
  - Feeling abnormal [None]
  - Ocular hyperaemia [None]
  - Yellow skin [None]
  - Exophthalmos [None]
  - Burning sensation [None]
  - Hyperhidrosis [None]
  - Tremor [None]
  - Food allergy [None]
  - Food aversion [None]
  - Tooth discolouration [None]
  - Drooling [None]
  - Dysgeusia [None]
  - Dysstasia [None]
  - Feeling hot [None]

NARRATIVE: CASE EVENT DATE: 20240701
